FAERS Safety Report 5268309-X (Version None)
Quarter: 2007Q1

REPORT INFORMATION
  Report Type: 
  Country: None (occurrence: None)
  Receive Date: 20070319
  Receipt Date: 20070305
  Transmission Date: 20070707
  Serious: Yes (Other)
  Sender: FDA-Public Use
  Company Number: PHNU2006DE02693

PATIENT
  Age: 30 Year
  Sex: Female

DRUGS (2)
  1. THYRONAJOD [Concomitant]
  2. LAMISIL [Suspect]
     Indication: NAIL TINEA
     Dosage: UNK, UNK
     Route: 048
     Dates: start: 20060725, end: 20060803

REACTIONS (5)
  - DYSGEUSIA [None]
  - EYELID FUNCTION DISORDER [None]
  - FACIAL PARESIS [None]
  - HYPOAESTHESIA ORAL [None]
  - NASOPHARYNGITIS [None]
